FAERS Safety Report 4748090-0 (Version None)
Quarter: 2005Q3

REPORT INFORMATION
  Report Type: 
  Country: None (occurrence: None)
  Receive Date: 20050818
  Receipt Date: 20050815
  Transmission Date: 20060218
  Serious: Yes (Death)
  Sender: FDA-Public Use
  Company Number: US-MERCK-0508USA02616

PATIENT
  Age: 87 Year
  Sex: Male

DRUGS (1)
  1. FOSAMAX [Suspect]
     Route: 048
     Dates: start: 20010101, end: 20041101

REACTIONS (4)
  - ARTHRALGIA [None]
  - GASTRIC DISORDER [None]
  - RENAL FAILURE [None]
  - ULCER HAEMORRHAGE [None]
